FAERS Safety Report 9887736 (Version 1)
Quarter: 2014Q1

REPORT INFORMATION
  Report Type: Spontaneous
  Country: DE (occurrence: DE)
  Receive Date: 20140211
  Receipt Date: 20140211
  Transmission Date: 20141002
  Serious: Yes (Other)
  Sender: FDA-Public Use
  Company Number: DE-JNJFOC-20140204451

PATIENT
  Age: 41 Year
  Sex: Female
  Weight: 50 kg

DRUGS (9)
  1. XARELTO [Suspect]
     Indication: EMBOLISM VENOUS
     Route: 048
     Dates: start: 20130321, end: 20130410
  2. XARELTO [Suspect]
     Indication: DEEP VEIN THROMBOSIS
     Route: 048
     Dates: start: 20130321, end: 20130410
  3. IBUPROFEN [Concomitant]
     Indication: DYSMENORRHOEA
     Route: 065
  4. IBUPROFEN [Concomitant]
     Indication: HEADACHE
     Route: 065
  5. PARACETAMOL [Concomitant]
     Indication: DYSMENORRHOEA
     Route: 065
  6. PARACETAMOL [Concomitant]
     Indication: HEADACHE
     Route: 065
  7. ARIXTRA [Concomitant]
     Indication: DEEP VEIN THROMBOSIS
     Dosage: 7.5 UNSPECIFIED UNIT
     Route: 065
  8. SERTRALINE [Concomitant]
     Indication: DEPRESSION
     Route: 065
  9. L-THYROXIN [Concomitant]
     Indication: THYROID DISORDER
     Route: 065

REACTIONS (2)
  - Caesarean section [Unknown]
  - Exposure during pregnancy [Unknown]
